FAERS Safety Report 23253231 (Version 1)
Quarter: 2023Q4

REPORT INFORMATION
  Report Type: Spontaneous
  Country: FR (occurrence: FR)
  Receive Date: 20231202
  Receipt Date: 20231202
  Transmission Date: 20240109
  Serious: Yes (Death, Hospitalization, Other)
  Sender: FDA-Public Use
  Company Number: FR-AFSSAPS-PO2023001189

PATIENT
  Age: 85 Year
  Sex: Male
  Weight: 68 kg

DRUGS (3)
  1. LEVOFLOXACIN [Suspect]
     Active Substance: LEVOFLOXACIN
     Indication: Osteitis
     Dosage: 500 MILLIGRAM (250MG/DAY FROM 10/11/2023)
     Route: 048
     Dates: start: 20231023
  2. CLINDAMYCIN [Suspect]
     Active Substance: CLINDAMYCIN
     Indication: Osteitis
     Dosage: 2400 MILLIGRAM (1800MG/DAY FROM 07/11/2023)
     Route: 048
     Dates: start: 20231023
  3. BACTRIM [Suspect]
     Active Substance: SULFAMETHOXAZOLE\TRIMETHOPRIM
     Indication: Osteitis
     Dosage: 3 DOSAGE FORM
     Route: 048
     Dates: start: 20231023, end: 20231105

REACTIONS (2)
  - Confusional state [Fatal]
  - Acute kidney injury [Recovering/Resolving]

NARRATIVE: CASE EVENT DATE: 20231106
